FAERS Safety Report 20975796 (Version 1)
Quarter: 2022Q2

REPORT INFORMATION
  Report Type: Spontaneous
  Country: CA (occurrence: CA)
  Receive Date: 20220617
  Receipt Date: 20220617
  Transmission Date: 20220721
  Serious: Yes (Other)
  Sender: FDA-Public Use
  Company Number: CA-PFIZER INC-202101638914

PATIENT
  Age: 59 Year
  Sex: Male
  Weight: 91.6 kg

DRUGS (9)
  1. XELJANZ [Suspect]
     Active Substance: TOFACITINIB CITRATE
     Indication: Colitis ulcerative
     Dosage: 10 MG, 2X/DAY
     Route: 048
     Dates: start: 20220128
  2. MESALAMINE [Concomitant]
     Active Substance: MESALAMINE
     Dosage: 4.8 MG, 1X/DAY
     Route: 065
     Dates: start: 20210317
  3. PREDNISONE [Concomitant]
     Active Substance: PREDNISONE
     Dosage: 1 DF
     Dates: start: 20210622
  4. PREDNISONE [Concomitant]
     Active Substance: PREDNISONE
     Dosage: FOR 7 DAYS, THEN, LOSS OF 5 MG / WEEK THEREAFTER
     Dates: start: 20210706
  5. PREDNISONE [Concomitant]
     Active Substance: PREDNISONE
     Dosage: DECREASE OF 5 MG EVERY 3 DAYS
     Dates: start: 202109
  6. PREDNISONE [Concomitant]
     Active Substance: PREDNISONE
     Dosage: 1 DF DOSAGE NOT AVAILABLE - DECREASING DOSE
     Route: 065
     Dates: start: 202109, end: 2021
  7. PREDNISONE [Concomitant]
     Active Substance: PREDNISONE
     Dosage: 45 MG WITH DECREASING DOSES
     Route: 065
     Dates: end: 2021
  8. PREDNISONE [Concomitant]
     Active Substance: PREDNISONE
     Dosage: 30 MG DOSAGE INFO: NOT PROVIDED. DOSE DECREASED. INITIALLY AT 45 MG, NOW AT 30 MG
     Route: 065
     Dates: start: 2021
  9. VITAMIN D NOS [Concomitant]
     Active Substance: VITAMIN D NOS
     Dosage: 10000 IU, WEEKLY
     Route: 065
     Dates: start: 20210322

REACTIONS (5)
  - Functional gastrointestinal disorder [Unknown]
  - Therapeutic product effect incomplete [Unknown]
  - Abdominal pain [Not Recovered/Not Resolved]
  - Frequent bowel movements [Unknown]
  - Change of bowel habit [Unknown]
